FAERS Safety Report 4542821-0 (Version None)
Quarter: 2004Q4

REPORT INFORMATION
  Report Type: 
  Country: None (occurrence: None)
  Receive Date: 20041229
  Receipt Date: 20041213
  Transmission Date: 20050328
  Serious: Yes (Disabling, Other)
  Sender: FDA-Public Use
  Company Number: 200407879

PATIENT
  Age: 55 Week
  Sex: Female

DRUGS (5)
  1. BOTOX [Suspect]
     Indication: FACIAL SPASM
     Dosage: 8.75 UNITS ONCE IM
     Route: 030
     Dates: start: 19960419, end: 19960419
  2. BOTOX [Suspect]
     Indication: FACIAL SPASM
     Dosage: 12.5 UNITS ONCE IM
     Route: 030
     Dates: start: 19960808, end: 19960808
  3. BOTOX [Suspect]
     Indication: FACIAL SPASM
     Dates: start: 19960815, end: 19960815
  4. BOTOX [Suspect]
     Indication: FACIAL SPASM
     Dosage: 25 UNITS ONCE IM
     Route: 030
     Dates: start: 19960924, end: 19960924
  5. BOTOX [Suspect]
     Indication: FACIAL SPASM
     Dosage: 25 UNITS ONCE IM
     Route: 030
     Dates: start: 19961212, end: 19961212

REACTIONS (20)
  - ACTINIC KERATOSIS [None]
  - CARPAL TUNNEL SYNDROME [None]
  - DEPRESSION [None]
  - DIVERTICULUM [None]
  - DRUG INEFFECTIVE [None]
  - DYSARTHRIA [None]
  - ELECTROCARDIOGRAM POOR R-WAVE PROGRESSION [None]
  - ELECTROCARDIOGRAM T WAVE ABNORMAL [None]
  - FACIAL PALSY [None]
  - HAEMORRHOIDS [None]
  - HYPERKERATOSIS [None]
  - INGROWING NAIL [None]
  - LOCALISED OSTEOARTHRITIS [None]
  - NEPHROLITHIASIS [None]
  - PARONYCHIA [None]
  - PERIPHERAL NERVE DECOMPRESSION [None]
  - RECTAL HAEMORRHAGE [None]
  - SEBORRHOEIC KERATOSIS [None]
  - TOE DEFORMITY [None]
  - VIRAL LABYRINTHITIS [None]
